FAERS Safety Report 16334634 (Version 1)
Quarter: 2019Q2

REPORT INFORMATION
  Report Type: Spontaneous
  Country: ES (occurrence: ES)
  Receive Date: 20190520
  Receipt Date: 20190520
  Transmission Date: 20190711
  Serious: Yes (Other)
  Sender: FDA-Public Use
  Company Number: ES-ALLERGAN-1855009US

PATIENT
  Sex: Female
  Weight: 47 kg

DRUGS (2)
  1. PYLERA [Suspect]
     Active Substance: BISMUTH SUBCITRATE POTASSIUM\METRONIDAZOLE\TETRACYCLINE HYDROCHLORIDE
     Indication: HELICOBACTER INFECTION
     Dosage: 3 DF,3 PILLS WITH BREAKFAST 3 PILLS WITH LUNCH, 3 PILLS IN THE EVENING AND 3 PILL IN THE DINNER
     Route: 048
     Dates: start: 20181115, end: 20181121
  2. OMEPRAZOLE. [Concomitant]
     Active Substance: OMEPRAZOLE
     Indication: PROPHYLAXIS AGAINST GASTROINTESTINAL ULCER
     Dosage: 2 DF, QD
     Route: 065
     Dates: start: 20181115, end: 20181121

REACTIONS (7)
  - Faeces discoloured [Recovering/Resolving]
  - Somnolence [Recovering/Resolving]
  - Retching [Recovering/Resolving]
  - Chromaturia [Recovering/Resolving]
  - Feeling abnormal [Recovered/Resolved]
  - Abdominal pain [Recovering/Resolving]
  - Nausea [Recovering/Resolving]

NARRATIVE: CASE EVENT DATE: 20181116
